FAERS Safety Report 4775595-9 (Version None)
Quarter: 2005Q3

REPORT INFORMATION
  Report Type: 
  Country: None (occurrence: None)
  Receive Date: 20050919
  Receipt Date: 20050919
  Transmission Date: 20060218
  Serious: Yes (Life-Threatening, Disabling)
  Sender: FDA-Public Use
  Company Number: None

PATIENT
  Age: 42 Year
  Sex: Male
  Weight: 97.5234 kg

DRUGS (1)
  1. POLI-GRIP GLAXOSMITHCLINE [Suspect]

REACTIONS (8)
  - BLOOD IRON DECREASED [None]
  - BLOOD ZINC INCREASED [None]
  - BONE MARROW DEPRESSION [None]
  - HYPOAESTHESIA [None]
  - NERVOUS SYSTEM DISORDER [None]
  - PAIN IN EXTREMITY [None]
  - PARAESTHESIA [None]
  - WHITE BLOOD CELL COUNT DECREASED [None]
